FAERS Safety Report 6971692-8 (Version None)
Quarter: 2010Q3

REPORT INFORMATION
  Report Type: 
  Country: None (occurrence: None)
  Receive Date: 20100908
  Receipt Date: 20100414
  Transmission Date: 20110219
  Serious: No
  Sender: FDA-Public Use
  Company Number: US-PFIZER INC-2010047833

PATIENT
  Sex: Female

DRUGS (1)
  1. NARDIL [Suspect]
     Dosage: UNK

REACTIONS (2)
  - NAUSEA [None]
  - SINUS DISORDER [None]
